FAERS Safety Report 16998654 (Version 1)
Quarter: 2019Q4

REPORT INFORMATION
  Report Type: Spontaneous
  Country: US (occurrence: US)
  Receive Date: 20191105
  Receipt Date: 20191105
  Transmission Date: 20200122
  Serious: No
  Sender: FDA-Public Use
  Company Number: US-RADIUS HEALTH INC.-2019US003118

PATIENT
  Sex: Female

DRUGS (4)
  1. TYMLOS [Suspect]
     Active Substance: ABALOPARATIDE
     Indication: OSTEOPOROSIS POSTMENOPAUSAL
     Dosage: 80 MCG, QD
     Route: 058
     Dates: start: 20190807, end: 20190901
  2. TYMLOS [Suspect]
     Active Substance: ABALOPARATIDE
     Indication: SACROILIITIS
  3. TYMLOS [Suspect]
     Active Substance: ABALOPARATIDE
     Indication: OSTEOPOROSIS
  4. TYMLOS [Suspect]
     Active Substance: ABALOPARATIDE
     Indication: MUSCLE SPASMS

REACTIONS (2)
  - Injection site pain [Unknown]
  - Pain [Unknown]
